FAERS Safety Report 14973836 (Version 4)
Quarter: 2019Q1

REPORT INFORMATION
  Report Type: Report from Study
  Country: US (occurrence: US)
  Receive Date: 20180605
  Receipt Date: 20190207
  Transmission Date: 20190417
  Serious: Yes (Other)
  Sender: FDA-Public Use
  Company Number: US-JNJFOC-20180540883

PATIENT

DRUGS (3)
  1. INFLIXIMAB, RECOMBINANT [Suspect]
     Active Substance: INFLIXIMAB
     Indication: COLITIS
     Route: 042
  2. INFLIXIMAB, RECOMBINANT [Suspect]
     Active Substance: INFLIXIMAB
     Indication: CROHN^S DISEASE
     Route: 042
  3. INFLIXIMAB, RECOMBINANT [Suspect]
     Active Substance: INFLIXIMAB
     Indication: COLITIS ULCERATIVE
     Route: 042

REACTIONS (8)
  - Bacteraemia [Unknown]
  - Systemic candida [Unknown]
  - Gastroenteritis clostridial [Unknown]
  - Staphylococcal skin infection [Unknown]
  - Urinary tract infection [Unknown]
  - Infection [Unknown]
  - Gastroenteritis Escherichia coli [Unknown]
  - Pneumonia [Unknown]
